FAERS Safety Report 19827865 (Version 1)
Quarter: 2021Q3

REPORT INFORMATION
  Report Type: Spontaneous
  Country: CA (occurrence: CA)
  Receive Date: 20210914
  Receipt Date: 20210914
  Transmission Date: 20211014
  Serious: Yes (Hospitalization)
  Sender: FDA-Public Use
  Company Number: CA-PFIZER INC-202101145934

PATIENT
  Age: 74 Year
  Sex: Female
  Weight: 83 kg

DRUGS (11)
  1. CELEXA [CELECOXIB] [Concomitant]
     Active Substance: CELECOXIB
  2. FERODAN [Concomitant]
  3. STATEX [MORPHINE SULFATE] [Concomitant]
     Active Substance: MORPHINE SULFATE
  4. SYSTANE LUBRICANT [Concomitant]
     Active Substance: POLYETHYLENE GLYCOL 400\PROPYLENE GLYCOL
  5. CARBOPLATIN. [Suspect]
     Active Substance: CARBOPLATIN
     Indication: LUNG NEOPLASM MALIGNANT
     Dosage: 613 MG
  6. ADALAT XL [Concomitant]
     Active Substance: NIFEDIPINE
     Dosage: 613 MG
  7. MAGNESIUM OXIDE. [Concomitant]
     Active Substance: MAGNESIUM OXIDE
  8. ETOPOSIDE. [Suspect]
     Active Substance: ETOPOSIDE
     Indication: LUNG NEOPLASM MALIGNANT
     Dosage: 1 DF (AT 1 DOSAGE FORM)
  9. CALCIUM + VITAMIN D [CALCIUM;COLECALCIFEROL] [Concomitant]
     Active Substance: CALCIUM\CHOLECALCIFEROL
  10. LASIX [Concomitant]
     Active Substance: FUROSEMIDE
  11. SYMBICORT [Concomitant]
     Active Substance: BUDESONIDE\FORMOTEROL FUMARATE DIHYDRATE

REACTIONS (1)
  - Febrile neutropenia [Recovered/Resolved]
